FAERS Safety Report 4777377-0 (Version None)
Quarter: 2005Q3

REPORT INFORMATION
  Report Type: 
  Country: None (occurrence: None)
  Receive Date: 20050923
  Receipt Date: 20050914
  Transmission Date: 20060218
  Serious: Yes (Other)
  Sender: FDA-Public Use
  Company Number: PHBS2005JP13420

PATIENT
  Age: 75 Year
  Sex: Female

DRUGS (2)
  1. FASTIC [Suspect]
     Indication: DIABETES MELLITUS
     Dosage: 90 MG, QD
     Route: 048
     Dates: start: 20050804, end: 20050804
  2. FASTIC [Suspect]
     Dosage: 270 MG, QD
     Route: 048
     Dates: start: 20050805, end: 20050808

REACTIONS (7)
  - ALANINE AMINOTRANSFERASE INCREASED [None]
  - ASPARTATE AMINOTRANSFERASE INCREASED [None]
  - BLOOD ALKALINE PHOSPHATASE INCREASED [None]
  - BLOOD BILIRUBIN INCREASED [None]
  - BLOOD LACTATE DEHYDROGENASE INCREASED [None]
  - GAMMA-GLUTAMYLTRANSFERASE INCREASED [None]
  - HEPATIC FUNCTION ABNORMAL [None]
